FAERS Safety Report 9362237 (Version 1)
Quarter: 2013Q2

REPORT INFORMATION
  Report Type: Spontaneous
  Country: US (occurrence: US)
  Receive Date: 20130622
  Receipt Date: 20130622
  Transmission Date: 20140414
  Serious: Yes (Death, Hospitalization, Other)
  Sender: FDA-Public Use
  Company Number: US-TEVA-413666USA

PATIENT
  Age: 81 Year
  Sex: 0

DRUGS (5)
  1. WARFARIN [Suspect]
     Indication: ATRIAL FIBRILLATION
     Route: 065
  2. PROFILNINE SD [Suspect]
     Indication: CEREBRAL HAEMORRHAGE
     Dosage: 25 UNITS/KG AT 10 ML/MIN
     Route: 042
  3. PROFILNINE SD [Suspect]
     Indication: INTRAVENTRICULAR HAEMORRHAGE
     Dosage: 25 UNITS/KG AT 10 ML/MIN
     Route: 042
  4. VITAMIN K [Concomitant]
     Indication: CEREBRAL HAEMORRHAGE
     Dosage: OVER 15 MIN
     Route: 042
  5. VITAMIN K [Concomitant]
     Indication: INTRAVENTRICULAR HAEMORRHAGE
     Dosage: OVER 15 MIN
     Route: 042

REACTIONS (5)
  - Cerebral haemorrhage [Not Recovered/Not Resolved]
  - Intraventricular haemorrhage [Not Recovered/Not Resolved]
  - Cerebral haematoma [Not Recovered/Not Resolved]
  - Condition aggravated [Not Recovered/Not Resolved]
  - Death [Fatal]
